FAERS Safety Report 25309150 (Version 1)
Quarter: 2025Q2

REPORT INFORMATION
  Report Type: Spontaneous
  Country: US (occurrence: US)
  Receive Date: 20250513
  Receipt Date: 20250513
  Transmission Date: 20250717
  Serious: No
  Sender: BLUEPRINT MEDICINES
  Company Number: US-Blueprint Medicines Corporation-2025-AER-00975

PATIENT
  Age: 77 Year
  Sex: Male

DRUGS (1)
  1. AYVAKIT [Suspect]
     Active Substance: AVAPRITINIB
     Indication: Chronic myelomonocytic leukaemia
     Dosage: \
     Route: 065
     Dates: start: 20250425

REACTIONS (4)
  - Platelet count decreased [Unknown]
  - Somnolence [Unknown]
  - Disorientation [Unknown]
  - Off label use [Unknown]
